FAERS Safety Report 5121311-0 (Version None)
Quarter: 2006Q4

REPORT INFORMATION
  Report Type: 
  Country: None (occurrence: None)
  Receive Date: 20061002
  Receipt Date: 20060921
  Transmission Date: 20070319
  Serious: Yes (Other)
  Sender: FDA-Public Use
  Company Number: 2006114174

PATIENT
  Age: 56 Year
  Sex: Male
  Weight: 82.5547 kg

DRUGS (11)
  1. XANAX [Suspect]
     Indication: ANXIETY
     Dosage: 0.25 MG
     Dates: start: 19990101
  2. CHANTIX [Suspect]
     Indication: SMOKING CESSATION THERAPY
     Dates: start: 20060901, end: 20060920
  3. ATACAND [Concomitant]
  4. COREG [Concomitant]
  5. MONTELUKAST [Concomitant]
  6. FOLIC ACID [Concomitant]
  7. LIPITOR [Concomitant]
  8. NIASPAN [Concomitant]
  9. NEXIUM [Concomitant]
  10. PLAVIX [Concomitant]
  11. VITAMINS [Concomitant]

REACTIONS (3)
  - BLOOD PRESSURE INCREASED [None]
  - DECREASED INTEREST [None]
  - ILL-DEFINED DISORDER [None]
